FAERS Safety Report 5076656-X (Version None)
Quarter: 2006Q3

REPORT INFORMATION
  Report Type: 
  Country: None (occurrence: None)
  Receive Date: 20060810
  Receipt Date: 20060418
  Transmission Date: 20061208
  Serious: Yes (Life-Threatening)
  Sender: FDA-Public Use
  Company Number: JP-AVENTIS-200612264EU

PATIENT
  Age: 78 Year
  Sex: Female

DRUGS (11)
  1. NATRIX [Suspect]
     Indication: HYPERTENSION
     Route: 048
     Dates: start: 20050525, end: 20050623
  2. COVERSYL [Suspect]
     Indication: HYPERTENSION
     Route: 048
     Dates: start: 20050511, end: 20051005
  3. ASPENON [Suspect]
     Route: 048
  4. ASPENON [Suspect]
     Route: 048
  5. DIGOXIN [Concomitant]
     Dates: start: 20050515
  6. DOGMATYL [Concomitant]
     Dates: start: 20050608
  7. WARFARIN SODIUM [Concomitant]
  8. LANIRAPID [Concomitant]
     Dates: start: 20050512
  9. PANTOSIN [Concomitant]
     Dates: start: 20050527, end: 20050810
  10. MAGMITT [Concomitant]
     Dates: start: 20050527, end: 20050810
  11. PAXIL [Concomitant]
     Dates: start: 20050605, end: 20050630

REACTIONS (6)
  - BLOOD UREA INCREASED [None]
  - ENTERITIS [None]
  - ENTEROCOLITIS [None]
  - HYPOCHLORAEMIA [None]
  - HYPONATRAEMIA [None]
  - SHOCK [None]
